FAERS Safety Report 24357575 (Version 1)
Quarter: 2024Q3

REPORT INFORMATION
  Report Type: Spontaneous
  Country: US (occurrence: None)
  Receive Date: 20240921
  Receipt Date: 20240921
  Transmission Date: 20241016
  Serious: Yes (Disabling)
  Sender: Public
  Company Number: None

PATIENT
  Age: 43 Year
  Sex: Female
  Weight: 81.65 kg

DRUGS (6)
  1. HALDOL [Suspect]
     Active Substance: HALOPERIDOL
     Dosage: 2 TABLETS EVERY 12 HOURS TAKEN BY MOUTH?
     Route: 048
     Dates: start: 20210912, end: 20210914
  2. ZIPRASIDONE [Suspect]
     Active Substance: ZIPRASIDONE
     Indication: Cardiac disorder
     Dosage: 1 INJECTION THREE TIMES A DAY INTO THE MUSCLE
     Route: 030
     Dates: start: 20210823, end: 20210914
  3. SEROQUEL [Suspect]
     Active Substance: QUETIAPINE FUMARATE
  4. DEPAKOTE [Suspect]
     Active Substance: DIVALPROEX SODIUM
  5. DICLOFENAC [Concomitant]
     Active Substance: DICLOFENAC
  6. LIQUID B COMPLEX [Concomitant]

REACTIONS (3)
  - Neuroleptic malignant syndrome [None]
  - Tardive dyskinesia [None]
  - Cardiac arrest [None]

NARRATIVE: CASE EVENT DATE: 20210904
